FAERS Safety Report 4523731-1 (Version None)
Quarter: 2004Q4

REPORT INFORMATION
  Report Type: 
  Country: None (occurrence: None)
  Receive Date: 20041210
  Receipt Date: 20041129
  Transmission Date: 20050328
  Serious: Yes (Hospitalization)
  Sender: FDA-Public Use
  Company Number: PHHO2004US17217

PATIENT
  Age: 53 Year
  Sex: Female
  Weight: 111 kg

DRUGS (4)
  1. ZOLOFT [Concomitant]
     Indication: DEPRESSION
     Dosage: 100 MG, QD
     Route: 048
     Dates: start: 20010101
  2. SYNTHROID [Concomitant]
     Indication: HYPOTHYROIDISM
     Dosage: 125 MG, QD
     Route: 048
     Dates: start: 20040101
  3. ZOLEDRONIC ACID VS PLACEBO [Suspect]
     Indication: OSTEOPOROSIS PROPHYLAXIS
     Dosage: 5 MG
     Route: 042
     Dates: start: 20041123
  4. PREVACID [Concomitant]
     Indication: GASTROOESOPHAGEAL REFLUX DISEASE
     Dosage: 30 ML, QD
     Route: 048
     Dates: start: 19940101

REACTIONS (2)
  - PAIN [None]
  - SYNCOPE [None]
